FAERS Safety Report 5654140-X (Version None)
Quarter: 2008Q1

REPORT INFORMATION
  Report Type: 
  Country: None (occurrence: None)
  Receive Date: 20080306
  Receipt Date: 20080212
  Transmission Date: 20080703
  Serious: No
  Sender: FDA-Public Use
  Company Number: US-BOEHRINGER INGELHEIM GMBH, GERMANY-2008-BP-02196BP

PATIENT
  Sex: Female
  Weight: 52 kg

DRUGS (1)
  1. DULCOLAX [Suspect]
     Indication: CONSTIPATION
     Route: 048
     Dates: start: 20080203

REACTIONS (2)
  - ABDOMINAL PAIN [None]
  - CONSTIPATION [None]
